FAERS Safety Report 24642921 (Version 1)
Quarter: 2024Q4

REPORT INFORMATION
  Report Type: Report from Study
  Country: US (occurrence: US)
  Receive Date: 20241120
  Receipt Date: 20241120
  Transmission Date: 20250115
  Serious: Yes (Death, Other)
  Sender: MERCK
  Company Number: US-009507513-2411USA007239

PATIENT
  Age: 68 Year
  Sex: Female
  Weight: 56.689 kg

DRUGS (2)
  1. SOTATERCEPT [Suspect]
     Active Substance: SOTATERCEPT
     Indication: Pulmonary arterial hypertension
     Dosage: 0.3 MILLILITER, ONCE; STARTING DOSE; STRENGTH: 45 MG
     Route: 058
     Dates: start: 20241029
  2. SOTATERCEPT [Suspect]
     Active Substance: SOTATERCEPT
     Dosage: 0.8 MILLILITER, Q3W; TARGET DOSE; STRENGTH: 45 MG
     Route: 058
     Dates: start: 2024

REACTIONS (2)
  - Death [Fatal]
  - Cerebral haemorrhage [Unknown]

NARRATIVE: CASE EVENT DATE: 20241109
